FAERS Safety Report 8059041-8 (Version None)
Quarter: 2012Q1

REPORT INFORMATION
  Report Type: 
  Country: None (occurrence: None)
  Receive Date: 20120120
  Receipt Date: 20110509
  Transmission Date: 20120608
  Serious: No
  Sender: FDA-Public Use
  Company Number: US-BAUSCH-2011BL003242

PATIENT
  Age: 73 Year
  Sex: Male

DRUGS (7)
  1. ALAWAY [Suspect]
     Indication: LACRIMATION INCREASED
     Route: 047
     Dates: start: 20110505, end: 20110509
  2. THYROXIN [Concomitant]
  3. VITAMIN D [Concomitant]
  4. LOVAZA [Concomitant]
  5. ALAWAY [Suspect]
     Indication: EYE LUBRICATION THERAPY
     Route: 047
     Dates: start: 20110505, end: 20110509
  6. TRILIPIX [Concomitant]
  7. MULTI-VITAMINS [Concomitant]

REACTIONS (2)
  - INSTILLATION SITE PAIN [None]
  - DRUG INEFFECTIVE FOR UNAPPROVED INDICATION [None]
